FAERS Safety Report 5939821-2 (Version None)
Quarter: 2008Q4

REPORT INFORMATION
  Report Type: 
  Country: None (occurrence: None)
  Receive Date: 20081031
  Receipt Date: 20081031
  Transmission Date: 20090506
  Serious: Yes (Life-Threatening)
  Sender: FDA-Public Use
  Company Number: None

PATIENT
  Sex: Male
  Weight: 70.3075 kg

DRUGS (2)
  1. PROAIR HFA [Suspect]
     Indication: ASTHMA
     Dosage: AS NEEDED AS NEEDED INHAL
     Dates: start: 20070101, end: 20081024
  2. PROAIR HFA [Suspect]
     Indication: DYSPNOEA
     Dosage: AS NEEDED AS NEEDED INHAL
     Dates: start: 20070101, end: 20081024

REACTIONS (3)
  - DRUG INEFFECTIVE [None]
  - PARADOXICAL DRUG REACTION [None]
  - PRODUCT QUALITY ISSUE [None]
